FAERS Safety Report 4323263-X (Version None)
Quarter: 2004Q1

REPORT INFORMATION
  Report Type: 
  Country: None (occurrence: None)
  Receive Date: 20040323
  Receipt Date: 20031229
  Transmission Date: 20041129
  Serious: No
  Sender: FDA-Public Use
  Company Number: M03-341-198

PATIENT
  Sex: Male

DRUGS (1)
  1. VELCADE [Suspect]

REACTIONS (2)
  - CONSTIPATION [None]
  - HYPOAESTHESIA [None]
